FAERS Safety Report 7563989-8 (Version None)
Quarter: 2011Q2

REPORT INFORMATION
  Report Type: 
  Country: None (occurrence: None)
  Receive Date: 20110622
  Receipt Date: 20110616
  Transmission Date: 20111010
  Serious: Yes (Death, Hospitalization)
  Sender: FDA-Public Use
  Company Number: US-ROCHE-784513

PATIENT
  Age: 58 Year
  Sex: Female
  Weight: 89.5 kg

DRUGS (1)
  1. BEVACIZUMAB [Suspect]
     Indication: BREAST CANCER
     Route: 042

REACTIONS (2)
  - HEPATIC FAILURE [None]
  - THROMBOCYTOPENIA [None]
